FAERS Safety Report 6558799-4 (Version None)
Quarter: 2010Q1

REPORT INFORMATION
  Report Type: 
  Country: None (occurrence: None)
  Receive Date: 20100129
  Receipt Date: 20100118
  Transmission Date: 20100710
  Serious: Yes (Other)
  Sender: FDA-Public Use
  Company Number: PHHY2009DE52625

PATIENT
  Sex: Male
  Weight: 30.2 kg

DRUGS (1)
  1. RITALIN LA [Suspect]
     Dosage: 20 MG PER DAY
     Route: 048
     Dates: start: 20091118, end: 20091126

REACTIONS (2)
  - ASTHMA [None]
  - DYSPNOEA EXERTIONAL [None]
